FAERS Safety Report 11006153 (Version 1)
Quarter: 2015Q2

REPORT INFORMATION
  Report Type: Spontaneous
  Country: US (occurrence: US)
  Receive Date: 20150409
  Receipt Date: 20150409
  Transmission Date: 20150821
  Serious: No
  Sender: FDA-Public Use
  Company Number: US-ALLERGAN-1102279US

PATIENT
  Sex: Female

DRUGS (2)
  1. LATISSE [Suspect]
     Active Substance: BIMATOPROST
     Dosage: UNK
     Dates: start: 20100820
  2. LATISSE [Suspect]
     Active Substance: BIMATOPROST
     Indication: GROWTH OF EYELASHES
     Dosage: UNK
     Route: 061
     Dates: start: 20140924, end: 20141008

REACTIONS (6)
  - Dry skin [Recovering/Resolving]
  - Eyelid pain [Not Recovered/Not Resolved]
  - Scleral hyperaemia [Not Recovered/Not Resolved]
  - Skin irritation [Not Recovered/Not Resolved]
  - Eye discharge [Recovering/Resolving]
  - Eye pain [Not Recovered/Not Resolved]
